FAERS Safety Report 23968328 (Version 1)
Quarter: 2024Q2

REPORT INFORMATION
  Report Type: Spontaneous
  Country: US (occurrence: US)
  Receive Date: 20240612
  Receipt Date: 20240612
  Transmission Date: 20240715
  Serious: No
  Sender: FDA-Public Use
  Company Number: US-002147023-NVSC2024US122984

PATIENT
  Sex: Female

DRUGS (1)
  1. SCEMBLIX [Suspect]
     Active Substance: ASCIMINIB HYDROCHLORIDE
     Indication: Product used for unknown indication
     Dosage: UNK, BID
     Route: 048

REACTIONS (2)
  - Gastrointestinal disorder [Recovered/Resolved]
  - Abdominal discomfort [Recovered/Resolved]
